FAERS Safety Report 16327779 (Version 1)
Quarter: 2019Q2

REPORT INFORMATION
  Report Type: Report from Study
  Country: ZA (occurrence: ZA)
  Receive Date: 20190518
  Receipt Date: 20190518
  Transmission Date: 20190711
  Serious: Yes (Hospitalization)
  Sender: FDA-Public Use
  Company Number: PHHY2019ZA112684

PATIENT
  Sex: Female

DRUGS (2)
  1. TAREG [Suspect]
     Active Substance: VALSARTAN
     Indication: CARDIAC DISORDER
  2. TAREG [Suspect]
     Active Substance: VALSARTAN
     Indication: HYPERTENSION
     Dosage: 80 MG, UNK
     Route: 048

REACTIONS (1)
  - Bronchitis [Unknown]
